FAERS Safety Report 4898531-3 (Version None)
Quarter: 2006Q1

REPORT INFORMATION
  Report Type: 
  Country: None (occurrence: None)
  Receive Date: 20060202
  Receipt Date: 20051202
  Transmission Date: 20060701
  Serious: Yes (Other)
  Sender: FDA-Public Use
  Company Number: PHFR2005GB03928

PATIENT
  Age: 46 Year
  Sex: Male

DRUGS (3)
  1. CLOZARIL [Suspect]
     Indication: SCHIZOPHRENIA
     Route: 048
     Dates: start: 19980424
  2. ASPIRIN [Concomitant]
     Route: 065
  3. ISOSORBIDE MONONITRATE [Concomitant]
     Route: 065

REACTIONS (4)
  - BLOOD CHOLESTEROL INCREASED [None]
  - DIABETES MELLITUS [None]
  - HYPERTENSION [None]
  - OBESITY [None]
